FAERS Safety Report 19609419 (Version 1)
Quarter: 2021Q3

REPORT INFORMATION
  Report Type: Spontaneous
  Country: US (occurrence: US)
  Receive Date: 20210726
  Receipt Date: 20210726
  Transmission Date: 20211014
  Serious: No
  Sender: FDA-Public Use
  Company Number: US-BAYER-2021-181400

PATIENT
  Age: 60 Year
  Sex: Female
  Weight: 53.52 kg

DRUGS (2)
  1. GADAVIST [Suspect]
     Active Substance: GADOBUTROL
     Indication: MAGNETIC RESONANCE IMAGING NECK
     Dosage: 5 ML, ONCE
     Route: 042
     Dates: start: 20210721, end: 20210721
  2. GADAVIST [Suspect]
     Active Substance: GADOBUTROL
     Indication: NECK PAIN

REACTIONS (3)
  - Erythema [Recovered/Resolved]
  - Urticaria [Recovering/Resolving]
  - Pruritus [Recovered/Resolved]

NARRATIVE: CASE EVENT DATE: 20210721
